FAERS Safety Report 6040600-9 (Version None)
Quarter: 2009Q1

REPORT INFORMATION
  Report Type: 
  Country: None (occurrence: None)
  Receive Date: 20090116
  Receipt Date: 20080414
  Transmission Date: 20090719
  Serious: No
  Sender: FDA-Public Use
  Company Number: US-BRISTOL-MYERS SQUIBB COMPANY-14150429

PATIENT
  Age: 11 Year
  Sex: Male

DRUGS (2)
  1. ABILIFY [Suspect]
     Indication: BIPOLAR DISORDER
     Dosage: 1 DOSAGE FORM = 2.5 (NO UNITS).
     Route: 048
     Dates: start: 20070301, end: 20080301
  2. WELLBUTRIN [Concomitant]
     Dosage: 1 DOSAGE FORM = 150(UNIT NOT SPECIFIED)

REACTIONS (1)
  - TARDIVE DYSKINESIA [None]
